FAERS Safety Report 19064345 (Version 1)
Quarter: 2021Q1

REPORT INFORMATION
  Report Type: Spontaneous
  Country: ES (occurrence: ES)
  Receive Date: 20210326
  Receipt Date: 20210326
  Transmission Date: 20210420
  Serious: Yes (Death, Hospitalization)
  Sender: FDA-Public Use
  Company Number: ES-AMNEAL PHARMACEUTICALS-2021-AMRX-01017

PATIENT
  Age: 11 Year
  Sex: Female

DRUGS (12)
  1. METHYLPREDNISOLONE SODIUM SUCCINATE. [Suspect]
     Active Substance: METHYLPREDNISOLONE SODIUM SUCCINATE
     Dosage: 30 MILLIGRAM/KILOGRAM, DAILY
     Route: 065
     Dates: start: 2020
  2. TOFACITINIB [Suspect]
     Active Substance: TOFACITINIB
     Indication: INTERSTITIAL LUNG DISEASE
     Dosage: 10 MILLIGRAM, 1X/DAY
     Route: 065
     Dates: start: 2020
  3. METHYLPREDNISOLONE SODIUM SUCCINATE. [Suspect]
     Active Substance: METHYLPREDNISOLONE SODIUM SUCCINATE
     Dosage: 2 MILLIGRAM/KILOGRAM, DAILY
     Route: 065
     Dates: start: 2020, end: 2020
  4. PREDNISONE. [Suspect]
     Active Substance: PREDNISONE
     Dosage: 60 MILLIGRAM, DAILY
     Route: 048
     Dates: start: 2020, end: 2020
  5. TACROLIMUS. [Suspect]
     Active Substance: TACROLIMUS
     Dosage: 0.2 MILLIGRAM/KILOGRAM, DAILY
     Route: 065
     Dates: start: 2020
  6. PREDNISONE. [Suspect]
     Active Substance: PREDNISONE
     Indication: INTERSTITIAL LUNG DISEASE
     Dosage: 1 MILLIGRAM/KILOGRAM, DAILY
     Route: 048
     Dates: start: 202002
  7. TACROLIMUS. [Suspect]
     Active Substance: TACROLIMUS
     Indication: INTERSTITIAL LUNG DISEASE
     Dosage: UNK
     Route: 065
     Dates: start: 202002, end: 2020
  8. IMMUNOGLOBULINS NOS [Concomitant]
     Active Substance: IMMUNE GLOBULIN NOS
     Indication: INTERSTITIAL LUNG DISEASE
     Dosage: 2 GR/KG
     Route: 042
     Dates: start: 2020
  9. CYCLOPHOSPHAMIDE. [Suspect]
     Active Substance: CYCLOPHOSPHAMIDE
     Indication: INTERSTITIAL LUNG DISEASE
     Dosage: 500 MG/M2
     Route: 042
     Dates: start: 2020
  10. TRIMETHOPRIM SULFAMETHOXAZOLE [Concomitant]
     Active Substance: SULFAMETHOXAZOLE\TRIMETHOPRIM
     Indication: PNEUMOCYSTIS JIROVECII INFECTION
     Dosage: UNK
     Route: 042
     Dates: start: 2020, end: 2020
  11. METHYLPREDNISOLONE SODIUM SUCCINATE. [Suspect]
     Active Substance: METHYLPREDNISOLONE SODIUM SUCCINATE
     Indication: INTERSTITIAL LUNG DISEASE
     Dosage: 30 MILLIGRAM/KILOGRAM, DAILY
     Route: 065
     Dates: start: 2020, end: 2020
  12. MYCOPHENOLATE MOF [Suspect]
     Active Substance: MYCOPHENOLATE MOFETIL
     Indication: INTERSTITIAL LUNG DISEASE
     Dosage: UNK
     Route: 065
     Dates: start: 202002, end: 2020

REACTIONS (5)
  - Septic shock [Fatal]
  - COVID-19 [Unknown]
  - Enterococcal infection [Fatal]
  - Multiple organ dysfunction syndrome [Fatal]
  - Haemophagocytic lymphohistiocytosis [Unknown]

NARRATIVE: CASE EVENT DATE: 2020
